FAERS Safety Report 17463163 (Version 2)
Quarter: 2020Q1

REPORT INFORMATION
  Report Type: Report from Study
  Country: GB (occurrence: GB)
  Receive Date: 20200226
  Receipt Date: 20200326
  Transmission Date: 20200409
  Serious: Yes (Other)
  Sender: FDA-Public Use
  Company Number: GB-EMD SERONO-9147517

PATIENT
  Sex: Female

DRUGS (2)
  1. REBIF [Suspect]
     Active Substance: INTERFERON BETA-1A
     Indication: MULTIPLE SCLEROSIS
     Dates: start: 20191101, end: 2019
  2. REBIF [Suspect]
     Active Substance: INTERFERON BETA-1A
     Dates: end: 202002

REACTIONS (3)
  - Unevaluable event [Unknown]
  - Hallucination [Unknown]
  - Influenza [Recovering/Resolving]
